FAERS Safety Report 17211856 (Version 2)
Quarter: 2020Q1

REPORT INFORMATION
  Report Type: Spontaneous
  Country: US (occurrence: US)
  Receive Date: 20191230
  Receipt Date: 20200102
  Transmission Date: 20200409
  Serious: Yes (Death, Life-Threatening, Hospitalization)
  Sender: FDA-Public Use
  Company Number: US-SCIEGEN PHARMACEUTICALS INC-2019SCILIT00397

PATIENT
  Age: 78 Year
  Sex: Male

DRUGS (2)
  1. LORAZEPAM. [Suspect]
     Active Substance: LORAZEPAM
  2. GABAPENTIN TABLETS [Suspect]
     Active Substance: GABAPENTIN

REACTIONS (1)
  - Toxicity to various agents [Fatal]
